FAERS Safety Report 25101290 (Version 1)
Quarter: 2025Q1

REPORT INFORMATION
  Report Type: Report from Study
  Country: US (occurrence: US)
  Receive Date: 20250320
  Receipt Date: 20250320
  Transmission Date: 20250408
  Serious: Yes (Death, Other)
  Sender: TAKEDA
  Company Number: US-TAKEDA-US201923006

PATIENT
  Age: 60 Year
  Sex: Female

DRUGS (4)
  1. HUMAN IMMUNOGLOBULIN G [Suspect]
     Active Substance: HUMAN IMMUNOGLOBULIN G
     Indication: Primary immunodeficiency syndrome
     Dosage: 16 GRAM, 1/WEEK
  2. HUMAN IMMUNOGLOBULIN G [Suspect]
     Active Substance: HUMAN IMMUNOGLOBULIN G
     Indication: Immunodeficiency common variable
  3. PRIVIGEN [Suspect]
     Active Substance: HUMAN IMMUNOGLOBULIN G
     Indication: Primary immunodeficiency syndrome
     Dosage: 60 GRAM, MONTHLY
  4. PRIVIGEN [Suspect]
     Active Substance: HUMAN IMMUNOGLOBULIN G
     Indication: Immunodeficiency common variable

REACTIONS (25)
  - Death [Fatal]
  - Pain in jaw [Unknown]
  - Gastrointestinal disorder [Unknown]
  - Upper respiratory tract infection [Unknown]
  - Poor quality sleep [Unknown]
  - Dry mouth [Unknown]
  - Parotid gland enlargement [Unknown]
  - Bronchitis [Unknown]
  - Emphysema [Unknown]
  - COVID-19 [Not Recovered/Not Resolved]
  - Skin disorder [Unknown]
  - Alopecia [Unknown]
  - Joint dislocation [Unknown]
  - Insurance issue [Unknown]
  - Skin lesion [Unknown]
  - Illness [Unknown]
  - Amnesia [Unknown]
  - Oropharyngeal pain [Unknown]
  - Lymphadenopathy [Unknown]
  - Malaise [Unknown]
  - Fatigue [Unknown]
  - Migraine [Unknown]
  - Headache [Unknown]
  - Infusion site pain [Unknown]
  - Nausea [Unknown]

NARRATIVE: CASE EVENT DATE: 20190712
